FAERS Safety Report 24119217 (Version 1)
Quarter: 2024Q3

REPORT INFORMATION
  Report Type: Spontaneous
  Country: PT (occurrence: PT)
  Receive Date: 20240722
  Receipt Date: 20240722
  Transmission Date: 20241017
  Serious: Yes (Death, Hospitalization, Other)
  Sender: MERCK
  Company Number: PT-009507513-2407PRT011346

PATIENT
  Age: 65 Year
  Sex: Male

DRUGS (1)
  1. PEMBROLIZUMAB [Suspect]
     Active Substance: PEMBROLIZUMAB
     Indication: Transitional cell carcinoma metastatic
     Dosage: UNK
     Dates: start: 202011

REACTIONS (3)
  - Death [Fatal]
  - Malignant neoplasm progression [Unknown]
  - Status epilepticus [Unknown]

NARRATIVE: CASE EVENT DATE: 20220901
